FAERS Safety Report 11092308 (Version 2)
Quarter: 2015Q2

REPORT INFORMATION
  Report Type: Spontaneous
  Country: DE (occurrence: DE)
  Receive Date: 20150506
  Receipt Date: 20150511
  Transmission Date: 20150821
  Serious: Yes (Other)
  Sender: FDA-Public Use
  Company Number: PHHY2015DE048948

PATIENT
  Sex: Female

DRUGS (1)
  1. SANDOSTATIN [Suspect]
     Active Substance: OCTREOTIDE ACETATE
     Indication: BENIGN INTRACRANIAL HYPERTENSION
     Dosage: 100 UG, BID
     Route: 065
     Dates: start: 201503

REACTIONS (4)
  - Dental discomfort [Unknown]
  - Off label use [Unknown]
  - Toothache [Unknown]
  - Pulpitis dental [Unknown]
